FAERS Safety Report 6915714-9 (Version None)
Quarter: 2010Q3

REPORT INFORMATION
  Report Type: 
  Country: None (occurrence: None)
  Receive Date: 20100804
  Receipt Date: 20100723
  Transmission Date: 20110219
  Serious: Yes (Hospitalization)
  Sender: FDA-Public Use
  Company Number: FR-1182749

PATIENT
  Age: 9 Year
  Sex: Female

DRUGS (1)
  1. SKIACOL (CYCLOPENTOLATE HYDROCHLORIDE) 0.5 % OPHTHALMIC SOLUTION EYE D [Suspect]
     Dosage: 5-6 GTT OU OPHTHALMIC
     Route: 047
     Dates: start: 20100630, end: 20100630

REACTIONS (5)
  - GAZE PALSY [None]
  - MUSCLE SPASMS [None]
  - RESTLESSNESS [None]
  - SOMNOLENCE [None]
  - SPEECH DISORDER [None]
